FAERS Safety Report 7315637-X (Version None)
Quarter: 2011Q1

REPORT INFORMATION
  Report Type: 
  Country: None (occurrence: None)
  Receive Date: 20110225
  Receipt Date: 20110214
  Transmission Date: 20110831
  Serious: Yes (Hospitalization)
  Sender: FDA-Public Use
  Company Number: PHHY2011SE12135

PATIENT
  Sex: Female

DRUGS (3)
  1. DALACIN [Suspect]
     Indication: PROSTATE INFECTION
     Dosage: 900 MG, UNK
     Route: 048
     Dates: start: 20101124, end: 20101222
  2. RIFAMPICIN SANDOZ [Suspect]
     Indication: PROSTATE INFECTION
     Dosage: 900 MG, UNK
     Route: 048
     Dates: start: 20101124, end: 20101222
  3. IBUMETIN [Concomitant]

REACTIONS (3)
  - PYREXIA [None]
  - DYSPNOEA [None]
  - EMPHYSEMA [None]
